FAERS Safety Report 9234163 (Version 6)
Quarter: 2014Q1

REPORT INFORMATION
  Report Type: Report from Study
  Country: DE (occurrence: DE)
  Receive Date: 20130416
  Receipt Date: 20140206
  Transmission Date: 20141002
  Serious: Yes (Hospitalization, Other)
  Sender: FDA-Public Use
  Company Number: DE-ROCHE-1214101

PATIENT
  Age: 64 Year
  Sex: Male
  Weight: 85 kg

DRUGS (11)
  1. RITUXIMAB [Suspect]
     Indication: RHEUMATOID ARTHRITIS
     Route: 042
  2. RITUXIMAB [Suspect]
     Route: 065
     Dates: start: 20120118
  3. RITUXIMAB [Suspect]
     Route: 065
     Dates: start: 20120725
  4. RITUXIMAB [Suspect]
     Route: 065
     Dates: start: 20130206
  5. METHOTREXAT [Suspect]
     Indication: RHEUMATOID ARTHRITIS
     Route: 048
     Dates: start: 200502
  6. METHOTREXAT [Suspect]
     Route: 065
     Dates: start: 20120118
  7. METHOTREXAT [Suspect]
     Route: 065
     Dates: start: 20120418
  8. METHOTREXAT [Suspect]
     Route: 065
     Dates: start: 20120725
  9. METHOTREXAT [Suspect]
     Route: 065
     Dates: start: 20130206, end: 20130619
  10. PREDNISOLON [Concomitant]
     Indication: RHEUMATOID ARTHRITIS
     Route: 065
  11. PANTOZOL (GERMANY) [Concomitant]
     Route: 048

REACTIONS (3)
  - Oesophageal adenocarcinoma [Recovering/Resolving]
  - Barrett^s oesophagus [Unknown]
  - Hiatus hernia [Unknown]
